FAERS Safety Report 10552253 (Version 1)
Quarter: 2014Q4

REPORT INFORMATION
  Report Type: Spontaneous
  Country: US (occurrence: None)
  Receive Date: 20141023
  Receipt Date: 20141023
  Transmission Date: 20150529
  Serious: No
  Sender: FDA-Public Use
  Company Number: AP356-01347-SPO-US

PATIENT
  Age: 63 Year
  Sex: Female
  Weight: 105 kg

DRUGS (13)
  1. SULINDAC (SULINDAC) [Concomitant]
  2. ACETAMINOPHEN (PARACETAMOL) [Concomitant]
     Active Substance: ACETAMINOPHEN
  3. NEOMYCIN (NEOMYCIN) [Concomitant]
     Active Substance: NEOMYCIN
  4. APIDRA [Concomitant]
     Active Substance: INSULIN GLULISINE
  5. CELEREX (CELECOXIB) [Concomitant]
  6. LANTUS [Concomitant]
     Active Substance: INSULIN GLARGINE
  7. METHOCARBAMOL (METHOCARBAMOL) [Concomitant]
  8. SIMVASTATIN (SIMVASTATIN) [Concomitant]
     Active Substance: SIMVASTATIN
  9. LEVOTHYROXINE (LEVOTHYROXINE) [Concomitant]
     Active Substance: LEVOTHYROXINE
  10. BELVIQ [Suspect]
     Active Substance: LORCASERIN HYDROCHLORIDE
     Indication: WEIGHT DECREASED
     Dosage: 20 MG, 2 IN 1 D, ORAL
     Route: 048
     Dates: start: 20140902
  11. CARVEDILOL (CARVEDILOL) [Concomitant]
     Active Substance: CARVEDILOL
  12. PIOGLITAZONE (PIOGLITAZONE) [Concomitant]
     Active Substance: PIOGLITAZONE
  13. ENALAPRIL (ENALAPRIL) [Concomitant]
     Active Substance: ENALAPRIL

REACTIONS (1)
  - Back pain [None]

NARRATIVE: CASE EVENT DATE: 20140906
